FAERS Safety Report 9611087 (Version 1)
Quarter: 2013Q4

REPORT INFORMATION
  Report Type: Not Available
  Country: US (occurrence: US)
  Receive Date: 20131009
  Receipt Date: 20131009
  Transmission Date: 20140711
  Serious: No
  Sender: FDA-Public Use
  Company Number: US-SAVIENT-2013S1000067

PATIENT
  Sex: Male
  Weight: 86.26 kg

DRUGS (8)
  1. KRYSTEXXA [Suspect]
     Indication: GOUT
     Route: 042
     Dates: start: 2012
  2. ANTIHISTAMINES [Concomitant]
     Indication: ALLERGY PROPHYLAXIS
  3. MULTIVITAMINS [Concomitant]
     Indication: PRODUCT USED FOR UNKNOWN INDICATION
     Route: 048
  4. HYDROXYZINE [Concomitant]
     Indication: PRURITUS
     Route: 048
     Dates: start: 2013
  5. HYDROXYZINE [Concomitant]
     Indication: NAUSEA
  6. CALCITRIOL [Concomitant]
     Indication: BLOOD CHOLESTEROL
     Route: 048
  7. DOXEPIN [Concomitant]
     Indication: SLEEP DISORDER
     Route: 048
  8. PRAVASTATIN SODIUM [Concomitant]
     Indication: PRODUCT USED FOR UNKNOWN INDICATION
     Route: 048

REACTIONS (5)
  - Mass excision [Unknown]
  - Skin haemorrhage [Unknown]
  - Atrophy [Not Recovered/Not Resolved]
  - Exercise tolerance decreased [Not Recovered/Not Resolved]
  - Pruritus [Not Recovered/Not Resolved]
